FAERS Safety Report 9008552 (Version 2)
Quarter: 2014Q1

REPORT INFORMATION
  Report Type: Report from Study
  Country: JP (occurrence: JP)
  Receive Date: 20130111
  Receipt Date: 20140117
  Transmission Date: 20141002
  Serious: Yes (Other)
  Sender: FDA-Public Use
  Company Number: JP-VERTEX PHARMACEUTICALS INC.-2013-000472

PATIENT
  Age: 45 Year
  Sex: Male

DRUGS (10)
  1. VX-950 (TELAPREVIR) [Suspect]
     Indication: CHRONIC HEPATITIS C
     Dosage: 1500 MG, QD
     Route: 048
     Dates: start: 20120710, end: 20121002
  2. REBETOL [Suspect]
     Indication: CHRONIC HEPATITIS C
     Dosage: 600 MG, QD
     Route: 048
     Dates: start: 20120710, end: 20120903
  3. REBETOL [Suspect]
     Dosage: 400 MG, QD
     Route: 048
     Dates: start: 20120904, end: 20121217
  4. PEGINTRON [Suspect]
     Indication: CHRONIC HEPATITIS C
     Dosage: 1.3 ?G/KG, QW
     Route: 058
     Dates: start: 20120710, end: 20121217
  5. SALAZOPYRIN [Concomitant]
     Dosage: 4000 MG, QD
     Route: 048
  6. ASACOL [Concomitant]
     Dosage: 3600 MG, QD
     Route: 048
     Dates: end: 20121002
  7. MIYA BM [Concomitant]
     Dosage: 3 DF, QD
     Route: 048
  8. SELBEX [Concomitant]
     Dosage: 150 MG, QD
     Route: 048
     Dates: start: 20120710, end: 20121217
  9. CALONAL [Concomitant]
     Dosage: 400 MG, PRN
     Route: 048
     Dates: start: 20120730, end: 20120826
  10. CALONAL [Concomitant]
     Dosage: 1200 MG, QD
     Route: 048
     Dates: start: 20120827, end: 20121002

REACTIONS (1)
  - White blood cell count decreased [Not Recovered/Not Resolved]
